FAERS Safety Report 25257753 (Version 1)
Quarter: 2025Q2

REPORT INFORMATION
  Report Type: Spontaneous
  Country: US (occurrence: US)
  Receive Date: 20250430
  Receipt Date: 20250430
  Transmission Date: 20250717
  Serious: Yes (Death, Life-Threatening, Other)
  Sender: RANBAXY
  Company Number: US-SUN PHARMACEUTICAL INDUSTRIES LTD-2025R1-505502

PATIENT
  Age: 44 Year
  Sex: Male

DRUGS (2)
  1. PHENOBARBITAL [Suspect]
     Active Substance: PHENOBARBITAL
     Indication: Mood altered
     Route: 065
  2. DILANTIN [Suspect]
     Active Substance: PHENYTOIN
     Indication: Mood altered
     Route: 065

REACTIONS (3)
  - Road traffic accident [Fatal]
  - Alcoholism [Fatal]
  - Therapy cessation [Fatal]
